FAERS Safety Report 9518731 (Version 2)
Quarter: 2013Q3

REPORT INFORMATION
  Report Type: Spontaneous
  Country: US (occurrence: None)
  Receive Date: 20130910
  Receipt Date: 20130924
  Transmission Date: 20140515
  Serious: Yes (Other)
  Sender: FDA-Public Use
  Company Number: BTG00081

PATIENT
  Age: 9 Year
  Sex: Female

DRUGS (7)
  1. VORAXAZE [Suspect]
     Indication: DRUG LEVEL INCREASED
     Dosage: 1000 UNITS (~36 UNITS/KG), SINGLE
     Dates: start: 20120510, end: 20120510
  2. VORAXAZE [Suspect]
     Indication: RENAL FAILURE ACUTE
     Dosage: 1000 UNITS (~36 UNITS/KG), SINGLE
     Dates: start: 20120510, end: 20120510
  3. METHOTREXATE (METHOTREXATE SODIUM) INFUSION [Concomitant]
  4. DOXORUBICIN (DOXORUBICIN HYDROCHLORIDE) [Concomitant]
  5. CISPLATIN (CISPLATIN) [Concomitant]
  6. IFOSFAMIDE (IFOSFAMIDE) [Concomitant]
  7. ETOPOSIDE (ETOPOSIDE) [Concomitant]

REACTIONS (5)
  - Mucosal inflammation [None]
  - Infusion related reaction [None]
  - Osteosarcoma metastatic [None]
  - Malignant neoplasm progression [None]
  - Drug hypersensitivity [None]
